FAERS Safety Report 11568710 (Version 1)
Quarter: 2015Q3

REPORT INFORMATION
  Report Type: Spontaneous
  Country: US (occurrence: US)
  Receive Date: 20150929
  Receipt Date: 20150929
  Transmission Date: 20151125
  Serious: Yes (Hospitalization)
  Sender: FDA-Public Use
  Company Number: PHEH2015US018989

PATIENT
  Age: 7 Year
  Sex: Male

DRUGS (1)
  1. TOBI [Suspect]
     Active Substance: TOBRAMYCIN
     Indication: ASTHMA
     Dosage: 300 MG, (2X, DAILY FOR 28 DAYS)
     Route: 055

REACTIONS (4)
  - Respiratory distress [Unknown]
  - Pneumonia viral [Unknown]
  - Off label use [Unknown]
  - Ileus [Unknown]

NARRATIVE: CASE EVENT DATE: 20150918
